FAERS Safety Report 18566404 (Version 1)
Quarter: 2020Q4

REPORT INFORMATION
  Report Type: Spontaneous
  Country: US (occurrence: US)
  Receive Date: 20201201
  Receipt Date: 20201201
  Transmission Date: 20210114
  Serious: No
  Sender: FDA-Public Use
  Company Number: US-INDIVIOR US-INDV-126796-2020

PATIENT
  Age: 56 Year
  Sex: Female

DRUGS (3)
  1. PERSERIS [Suspect]
     Active Substance: RISPERIDONE
     Dosage: 120 MILLIGRAM, QMO
     Route: 051
     Dates: start: 20200908
  2. PERSERIS [Suspect]
     Active Substance: RISPERIDONE
     Indication: SCHIZOPHRENIA
     Dosage: 120 MILLIGRAM, QMO
     Route: 065
     Dates: start: 2020
  3. PERSERIS [Suspect]
     Active Substance: RISPERIDONE
     Dosage: 120 MILLIGRAM, QMO
     Route: 058
     Dates: start: 20201007

REACTIONS (2)
  - Product administered at inappropriate site [Recovered/Resolved]
  - No adverse event [Unknown]

NARRATIVE: CASE EVENT DATE: 2020
